FAERS Safety Report 16754611 (Version 1)
Quarter: 2019Q4

REPORT INFORMATION
  Report Type: Spontaneous
  Country: US (occurrence: US)
  Receive Date: 20190828
  Receipt Date: 20190828
  Transmission Date: 20200122
  Serious: Yes (Hospitalization)
  Sender: FDA-Public Use
  Company Number: None

PATIENT
  Age: 29 Year
  Sex: Female
  Weight: 99.8 kg

DRUGS (8)
  1. INSULIN GLARGIN [Concomitant]
     Active Substance: INSULIN GLARGINE
  2. LEVOFLOXACIN. [Suspect]
     Active Substance: LEVOFLOXACIN
     Indication: PNEUMONIA
     Route: 048
     Dates: start: 20190817, end: 20190820
  3. SODIUM CHLORIDE 0.9% SYRINGE [Concomitant]
  4. ASPIRIN-CALCIUM CARBONATE [Concomitant]
  5. INSULIN LISPRO [Concomitant]
     Active Substance: INSULIN LISPRO
  6. ONDANSETRON [Concomitant]
     Active Substance: ONDANSETRON
  7. PIPERACILLIN/TAZOBACTAM [Suspect]
     Active Substance: PIPERACILLIN SODIUM\TAZOBACTAM SODIUM
     Indication: OSTEOMYELITIS
     Route: 042
     Dates: start: 20190803, end: 20190824
  8. HEPARIN SYRINGE [Concomitant]

REACTIONS (7)
  - Nausea [None]
  - White blood cell count decreased [None]
  - Leukopenia [None]
  - Platelet count decreased [None]
  - Neutropenia [None]
  - Diarrhoea [None]
  - Pneumonia [None]

NARRATIVE: CASE EVENT DATE: 20190824
